FAERS Safety Report 7256334 (Version 3)
Quarter: 2013Q1

REPORT INFORMATION
  Report Type: Spontaneous
  Country: MX (occurrence: MX)
  Receive Date: 20100126
  Receipt Date: 20130214
  Transmission Date: 20140127
  Serious: Yes (Death, Hospitalization, Other)
  Sender: FDA-Public Use
  Company Number: PHHY2009MX48697

PATIENT
  Age: 77 Year
  Sex: Female

DRUGS (7)
  1. GALVUS MET [Suspect]
     Dosage: 2 DF (500 MG METF AND 50 MG VILD), DAILY
     Route: 048
     Dates: start: 201001
  2. CO-DIOVAN [Suspect]
     Dosage: 1 TABLET PER DAY (80 MG VALS AND 12.5 MG HYDR)
     Route: 048
     Dates: start: 200911
  3. CO-DIOVAN [Suspect]
     Dosage: 1 TABLET PER DAY (320 MG VALS AND 25 MG HYDR)
     Route: 048
  4. DIOVAN [Suspect]
     Indication: HYPERTENSION
     Dosage: 2 TABLETS (160 MG) DAILY
     Route: 048
     Dates: start: 20070815, end: 20091103
  5. EXFORGE [Suspect]
     Dosage: 1 DF, UNK
     Route: 048
     Dates: start: 20101101
  6. GLIBENCLAMIDE W/METFORMIN [Concomitant]
     Indication: DIABETES MELLITUS
     Dosage: 2 DF, UNK
     Route: 065
  7. METOPROLOL [Concomitant]
     Route: 065

REACTIONS (8)
  - Renal failure [Fatal]
  - Renal pain [Fatal]
  - Metabolic disorder [Fatal]
  - Dyspnoea [Fatal]
  - Local swelling [Fatal]
  - Hypertension [Fatal]
  - Blood glucose increased [Recovered/Resolved]
  - Fluid retention [Not Recovered/Not Resolved]
